FAERS Safety Report 19883188 (Version 1)
Quarter: 2021Q3

REPORT INFORMATION
  Report Type: Spontaneous
  Country: US (occurrence: US)
  Receive Date: 20210926
  Receipt Date: 20210926
  Transmission Date: 20211014
  Serious: No
  Sender: FDA-Public Use
  Company Number: US-ORGANON-O2109USA001027

PATIENT
  Age: 49 Year
  Sex: Male

DRUGS (2)
  1. DULERA [Concomitant]
     Active Substance: FORMOTEROL FUMARATE DIHYDRATE\MOMETASONE FUROATE
     Indication: ASTHMA
     Dosage: UNK
     Dates: start: 202007
  2. DULERA [Suspect]
     Active Substance: FORMOTEROL FUMARATE DIHYDRATE\MOMETASONE FUROATE
     Indication: ASTHMA
     Dosage: 1 INHALATION EVERY OTHER DAY, 120 DOSES
     Dates: start: 20210706

REACTIONS (5)
  - Product use issue [Unknown]
  - Wrong technique in device usage process [Unknown]
  - Dyspnoea [Not Recovered/Not Resolved]
  - Poor quality device used [Unknown]
  - Device malfunction [Unknown]

NARRATIVE: CASE EVENT DATE: 20210706
